FAERS Safety Report 26157782 (Version 1)
Quarter: 2025Q4

REPORT INFORMATION
  Report Type: Spontaneous
  Country: US (occurrence: None)
  Receive Date: 20251212
  Receipt Date: 20251212
  Transmission Date: 20260117
  Serious: Yes (Life-Threatening)
  Sender: FDA-CTU
  Company Number: None

PATIENT
  Age: 22 Year
  Sex: Female
  Weight: 144 kg

DRUGS (12)
  1. SKYRIZI [Suspect]
     Active Substance: RISANKIZUMAB-RZAA
     Indication: Psoriasis
     Dates: start: 20251205
  2. SKYRIZI [Suspect]
     Active Substance: RISANKIZUMAB-RZAA
     Indication: Psoriatic arthropathy
  3. SKYRIZI [Suspect]
     Active Substance: RISANKIZUMAB-RZAA
     Indication: Colitis ulcerative
  4. LEXAPRO [Concomitant]
     Active Substance: ESCITALOPRAM OXALATE
  5. PROPRANOLOL [Concomitant]
     Active Substance: PROPRANOLOL HYDROCHLORIDE
  6. OMEPRAZOLE [Concomitant]
     Active Substance: OMEPRAZOLE
  7. VITAMIN D3 [Concomitant]
     Active Substance: CHOLECALCIFEROL
  8. CANNABIDIOL [Concomitant]
     Active Substance: CANNABIDIOL
  9. ZYRTEC [Concomitant]
     Active Substance: CETIRIZINE HYDROCHLORIDE
  10. Lithium Orotate 50mg [Concomitant]
  11. Lidocaine unscented spray [Concomitant]
  12. Voltaren topical gel 1% [Concomitant]

REACTIONS (13)
  - Arthralgia [None]
  - Seasonal allergy [None]
  - Eye swelling [None]
  - Pharyngeal swelling [None]
  - Paranasal sinus discomfort [None]
  - Eye irritation [None]
  - Swelling face [None]
  - Swollen tongue [None]
  - Dust allergy [None]
  - Guttate psoriasis [None]
  - Musculoskeletal stiffness [None]
  - Stomatitis [None]
  - White blood cell count increased [None]

NARRATIVE: CASE EVENT DATE: 20251211
